FAERS Safety Report 19190386 (Version 1)
Quarter: 2021Q2

REPORT INFORMATION
  Report Type: Spontaneous
  Country: GB (occurrence: GB)
  Receive Date: 20210428
  Receipt Date: 20210428
  Transmission Date: 20210717
  Serious: Yes (Other)
  Sender: FDA-Public Use
  Company Number: GB-ANIPHARMA-2021-UK-000133

PATIENT
  Age: 63 Year
  Sex: Female

DRUGS (6)
  1. LETROZOLE. [Suspect]
     Active Substance: LETROZOLE
     Dosage: UNKNOWN DOSE AND FREQUENCY
     Route: 065
  2. ANASTROZOLE. [Suspect]
     Active Substance: ANASTROZOLE
     Indication: BREAST CANCER
     Dosage: UNKNOWN DOSE AND FREQUENCY
     Route: 048
  3. FULVESTRANT. [Suspect]
     Active Substance: FULVESTRANT
     Dosage: UNKNOWN DOSE AND FREQUENCY
     Route: 030
  4. DENOSUMAB [Suspect]
     Active Substance: DENOSUMAB
     Dosage: UNKNOWN DOSE AND FREQUENCY
     Route: 065
  5. DOCETAXEL. [Suspect]
     Active Substance: DOCETAXEL
     Dosage: UNKNOWN DOSE AND FREQUENCY
     Route: 065
  6. ALPELISIB [Suspect]
     Active Substance: ALPELISIB
     Dosage: 300 MG QD
     Route: 065

REACTIONS (5)
  - Diarrhoea [Unknown]
  - Nausea [Unknown]
  - Metastases to bone [Unknown]
  - Blood glucose increased [Unknown]
  - Back pain [Unknown]

NARRATIVE: CASE EVENT DATE: 201812
